FAERS Safety Report 9605594 (Version 1)
Quarter: 2013Q4

REPORT INFORMATION
  Report Type: Spontaneous
  Country: US (occurrence: None)
  Receive Date: 20131008
  Receipt Date: 20131008
  Transmission Date: 20140711
  Serious: Yes (Other)
  Sender: FDA-Public Use
  Company Number: None

PATIENT
  Age: 37 Year
  Sex: Female
  Weight: 53.98 kg

DRUGS (4)
  1. BUPIVACAINE [Suspect]
     Indication: MUSCULOSKELETAL PAIN
     Dosage: 2 PUMPS, MASAGE IN SKIN FOR 2   TWICE DAILY  APPLIED TO A SURFACE, USUALLY THE SKIN
     Route: 061
     Dates: start: 20130626, end: 20130714
  2. BUPIVACAINE [Suspect]
     Indication: PAIN IN EXTREMITY
     Dosage: 2 PUMPS, MASAGE IN SKIN FOR 2   TWICE DAILY  APPLIED TO A SURFACE, USUALLY THE SKIN
     Route: 061
     Dates: start: 20130626, end: 20130714
  3. CLONIDINE [Suspect]
     Dosage: 2 PUMPS, MASAGE IN SKIN FOR 2  TWICE DAILY  APPLIED TO A SURFACE, USUALLY THE SKIN
     Route: 061
     Dates: start: 20130626, end: 20130714
  4. GABAPENTIN [Suspect]
     Dosage: 2 PUMPS, MASAGE IN SKIN FOR 2  TWICE DAILY  APPLIED TO A SURFACE, USUALLY THE SKIN
     Route: 061
     Dates: start: 20130626, end: 20130714

REACTIONS (2)
  - Application site rash [None]
  - Chemical burn of skin [None]
